FAERS Safety Report 21305893 (Version 1)
Quarter: 2022Q3

REPORT INFORMATION
  Report Type: Spontaneous
  Country: US (occurrence: None)
  Receive Date: 20220908
  Receipt Date: 20220908
  Transmission Date: 20221027
  Serious: Yes (Other)
  Sender: FDA-Public Use
  Company Number: US-ROCHE-3164479

PATIENT
  Sex: Female
  Weight: 45.854 kg

DRUGS (1)
  1. OCREVUS [Suspect]
     Active Substance: OCRELIZUMAB
     Indication: Product used for unknown indication
     Dosage: ONGOING UNKNOWN
     Route: 065
     Dates: start: 20190214

REACTIONS (6)
  - Neutropenic colitis [Unknown]
  - Sepsis [Unknown]
  - Leukopenia [Unknown]
  - Enteritis [Unknown]
  - Leukocytosis [Unknown]
  - Bacteraemia [Unknown]
